FAERS Safety Report 5451581-0 (Version None)
Quarter: 2007Q3

REPORT INFORMATION
  Report Type: 
  Country: None (occurrence: None)
  Receive Date: 20070913
  Receipt Date: 20070905
  Transmission Date: 20080115
  Serious: Yes (Other)
  Sender: FDA-Public Use
  Company Number: SE-SHR-SE-2007-033333

PATIENT
  Age: 47 Year
  Sex: Female

DRUGS (3)
  1. LEVONORGESTREL [Suspect]
     Indication: CONTRACEPTION
     Dosage: 20 A?G/DAY, CONT
     Route: 015
     Dates: start: 19970301, end: 20010301
  2. LEVONORGESTREL [Suspect]
     Dosage: 20 A?G/DAY, CONT
     Route: 015
     Dates: start: 20010301, end: 20061003
  3. LEVONORGESTREL [Suspect]
     Dosage: 20 A?G/DAY, CONT
     Route: 015
     Dates: start: 20061003, end: 20070829

REACTIONS (1)
  - BREAST CANCER [None]
